FAERS Safety Report 5833908-0 (Version None)
Quarter: 2008Q3

REPORT INFORMATION
  Report Type: 
  Country: None (occurrence: None)
  Receive Date: 20080805
  Receipt Date: 20080801
  Transmission Date: 20090109
  Serious: Yes (Hospitalization)
  Sender: FDA-Public Use
  Company Number: B0524667A

PATIENT
  Age: 55 Year
  Sex: Male

DRUGS (7)
  1. SEREVENT [Suspect]
     Indication: ASTHMA
     Dosage: 50MCG TWICE PER DAY
     Route: 055
     Dates: end: 20080604
  2. FLUTIDE [Concomitant]
     Indication: ASTHMA
     Dosage: 800MCG PER DAY
     Route: 055
  3. PREDONINE [Concomitant]
     Indication: ASTHMA
     Dosage: 5MG PER DAY
     Route: 055
  4. SINGULAIR [Concomitant]
     Indication: ASTHMA
     Dosage: 10MG PER DAY
     Route: 055
  5. GASTER D [Concomitant]
     Dosage: 40MG PER DAY
     Route: 055
  6. UNIPHYL [Concomitant]
     Indication: ASTHMA
     Dosage: 400MG PER DAY
     Route: 055
  7. MAGMITT [Concomitant]
     Indication: ASTHMA
     Dosage: 990MG PER DAY
     Route: 055

REACTIONS (4)
  - ANGINA PECTORIS [None]
  - ARTERIOSPASM CORONARY [None]
  - CHEST PAIN [None]
  - PRINZMETAL ANGINA [None]
